FAERS Safety Report 6518009-0 (Version None)
Quarter: 2009Q4

REPORT INFORMATION
  Report Type: 
  Country: None (occurrence: None)
  Receive Date: 20091223
  Receipt Date: 20091223
  Transmission Date: 20100525
  Serious: Yes (Life-Threatening, Hospitalization, Disabling)
  Sender: FDA-Public Use
  Company Number: None

PATIENT
  Age: 70 Year
  Sex: Male
  Weight: 65.7716 kg

DRUGS (1)
  1. ENBREL [Suspect]
     Indication: RHEUMATOID ARTHRITIS
     Dosage: 50 MG INJECTED WEEKLY THIGH
     Dates: start: 20070901, end: 20080601

REACTIONS (10)
  - BALANCE DISORDER [None]
  - DEAFNESS [None]
  - EYELID DISORDER [None]
  - FACIAL NERVE DISORDER [None]
  - FACIAL PALSY [None]
  - HERPES ZOSTER [None]
  - IMMUNE SYSTEM DISORDER [None]
  - SINUS DISORDER [None]
  - VIIITH NERVE LESION [None]
  - VITH NERVE DISORDER [None]
